FAERS Safety Report 9373728 (Version 4)
Quarter: 2014Q2

REPORT INFORMATION
  Report Type: Report from Study
  Country: IT (occurrence: IT)
  Receive Date: 20130627
  Receipt Date: 20140401
  Transmission Date: 20141212
  Serious: Yes (Death, Other)
  Sender: FDA-Public Use
  Company Number: IT-ROCHE-1235646

PATIENT
  Age: 65 Year
  Sex: Male

DRUGS (2)
  1. VEMURAFENIB [Suspect]
     Indication: METASTATIC MALIGNANT MELANOMA
     Dosage: COATED TABLET
     Route: 048
     Dates: start: 20130116, end: 20130122
  2. VEMURAFENIB [Suspect]
     Route: 048
     Dates: start: 20130307, end: 20131220

REACTIONS (6)
  - Disease progression [Fatal]
  - Abdominal pain upper [Recovered/Resolved]
  - Pyrexia [Recovered/Resolved]
  - Hydronephrosis [Unknown]
  - Blood creatinine increased [Not Recovered/Not Resolved]
  - Renal failure chronic [Not Recovered/Not Resolved]
